FAERS Safety Report 7422664-0 (Version None)
Quarter: 2011Q2

REPORT INFORMATION
  Report Type: 
  Country: None (occurrence: None)
  Receive Date: 20110414
  Receipt Date: 20110414
  Transmission Date: 20111010
  Serious: Yes (Hospitalization)
  Sender: FDA-Public Use
  Company Number: None

PATIENT
  Sex: Male
  Weight: 96.8 kg

DRUGS (2)
  1. TAXOL [Suspect]
     Dosage: 537.5 MG
  2. CARBOPLATIN [Suspect]
     Dosage: 1174.8 MG

REACTIONS (4)
  - ASTHENIA [None]
  - BLOOD CULTURE POSITIVE [None]
  - MUSCULAR WEAKNESS [None]
  - STAPHYLOCOCCAL INFECTION [None]
